FAERS Safety Report 24155838 (Version 1)
Quarter: 2024Q3

REPORT INFORMATION
  Report Type: Spontaneous
  Country: JP (occurrence: JP)
  Receive Date: 20240731
  Receipt Date: 20240731
  Transmission Date: 20241016
  Serious: Yes (Other)
  Sender: RANBAXY
  Company Number: JP-SUN PHARMACEUTICAL INDUSTRIES LTD-2024R1-459498

PATIENT
  Age: 2 Day
  Sex: Male

DRUGS (3)
  1. DIGOXIN [Suspect]
     Active Substance: DIGOXIN
     Indication: Supraventricular tachycardia
     Dosage: UNK
     Route: 065
  2. LACTULOSE [Suspect]
     Active Substance: LACTULOSE
     Indication: Prophylaxis
     Dosage: UNK
     Route: 065
  3. ARGININE [Suspect]
     Active Substance: ARGININE
     Indication: Prophylaxis
     Dosage: UNK
     Route: 065

REACTIONS (8)
  - Disease progression [Unknown]
  - Drug ineffective [Unknown]
  - Toxicity to various agents [Unknown]
  - Vomiting [Unknown]
  - Tachypnoea [Unknown]
  - Somnolence [Unknown]
  - Fontanelle bulging [Unknown]
  - Metabolic acidosis [Unknown]
